FAERS Safety Report 18696430 (Version 2)
Quarter: 2021Q3

REPORT INFORMATION
  Report Type: Report from Study
  Country: SE (occurrence: SE)
  Receive Date: 20210104
  Receipt Date: 20210928
  Transmission Date: 20211014
  Serious: Yes (Other)
  Sender: FDA-Public Use
  Company Number: SE-TAKEDA-SE202033947

PATIENT
  Age: 55 Year
  Sex: Female

DRUGS (51)
  1. TEDUGLUTIDE [Suspect]
     Active Substance: TEDUGLUTIDE
     Dosage: 2 MILLIGRAM (0.03 MILLIGRAM/KILOGRAM DAILY DOSE, 7 DOSES PER WEEK)
     Route: 065
     Dates: start: 20191031, end: 20191031
  2. TEDUGLUTIDE [Suspect]
     Active Substance: TEDUGLUTIDE
     Dosage: 2 MILLIGRAM (0.03 MILLIGRAM/KILOGRAM DAILY DOSE, 7 DOSES PER WEEK)
     Route: 065
     Dates: start: 20191101, end: 20191101
  3. TEDUGLUTIDE [Suspect]
     Active Substance: TEDUGLUTIDE
     Dosage: 2.4 MILLIGRAM (0.04 MILLIGRAM/KILOGRAM DAILY DOSE, 7 DOSES PER WEEK)
     Route: 065
     Dates: start: 20191102, end: 20191102
  4. TEDUGLUTIDE [Suspect]
     Active Substance: TEDUGLUTIDE
     Dosage: 2.9 MILLIGRAM (0.04 MILLIGRAM/KILOGRAM DAILY DOSE, 7 DOSES PER WEEK)
     Route: 065
     Dates: start: 20191104, end: 20191104
  5. TEDUGLUTIDE [Suspect]
     Active Substance: TEDUGLUTIDE
     Dosage: 2.9 MILLIGRAM (0.04 MILLIGRAM/KILOGRAM DAILY DOSE, 7 DOSES PER WEEK)
     Route: 065
     Dates: start: 20191105, end: 20191105
  6. TEDUGLUTIDE [Suspect]
     Active Substance: TEDUGLUTIDE
     Dosage: 2 MILLIGRAM (0.03 MILLIGRAM/KILOGRAM DAILY DOSE, 7 DOSES PER WEEK)
     Route: 065
     Dates: start: 20191031, end: 20191031
  7. TEDUGLUTIDE [Suspect]
     Active Substance: TEDUGLUTIDE
     Dosage: 2.4 MILLIGRAM (0.04 MILLIGRAM/KILOGRAM DAILY DOSE, 7 DOSES PER WEEK)
     Route: 065
     Dates: start: 20191103, end: 20191103
  8. AMLODIPINE [Concomitant]
     Active Substance: AMLODIPINE BESYLATE
     Indication: HYPERTENSION
  9. KONAKION [Concomitant]
     Active Substance: PHYTONADIONE
     Indication: VITAMIN K DEFICIENCY
  10. KETOGAN NOVUM [Concomitant]
     Active Substance: KETOBEMIDONE HYDROCHLORIDE
     Indication: NEPHROLITHIASIS
  11. RESONIUM [Concomitant]
     Active Substance: SODIUM POLYSTYRENE SULFONATE
     Indication: HYPERKALAEMIA
  12. FLAGYL [Concomitant]
     Active Substance: METRONIDAZOLE\METRONIDAZOLE HYDROCHLORIDE
     Indication: SHORT-BOWEL SYNDROME
  13. TEDUGLUTIDE [Suspect]
     Active Substance: TEDUGLUTIDE
     Dosage: 2.4 MILLIGRAM (0.04 MILLIGRAM/KILOGRAM DAILY DOSE, 7 DOSES PER WEEK)
     Route: 065
     Dates: start: 20191103, end: 20191103
  14. TEDUGLUTIDE [Suspect]
     Active Substance: TEDUGLUTIDE
     Dosage: 2.4 MILLIGRAM (0.04 MILLIGRAM/KILOGRAM DAILY DOSE, 7 DOSES PER WEEK)
     Route: 065
     Dates: start: 20191103, end: 20191103
  15. TEDUGLUTIDE [Suspect]
     Active Substance: TEDUGLUTIDE
     Dosage: 2.9 MILLIGRAM (0.04 MILLIGRAM/KILOGRAM DAILY DOSE, 7 DOSES PER WEEK)
     Route: 065
     Dates: start: 20191104, end: 20191104
  16. TEDUGLUTIDE [Suspect]
     Active Substance: TEDUGLUTIDE
     Dosage: 3.4 MILLIGRAM (0.05 MILLIGRAM/KILOGRAM DAILY DOSE, 7 DOSES PER WEEK)
     Route: 065
     Dates: start: 20191106
  17. TEDUGLUTIDE [Suspect]
     Active Substance: TEDUGLUTIDE
     Dosage: 3.4 MILLIGRAM (0.05 MILLIGRAM/KILOGRAM DAILY DOSE, 7 DOSES PER WEEK)
     Route: 065
     Dates: start: 20191106
  18. TEDUGLUTIDE [Suspect]
     Active Substance: TEDUGLUTIDE
     Dosage: 3.4 MILLIGRAM (0.05 MILLIGRAM/KILOGRAM DAILY DOSE, 7 DOSES PER WEEK)
     Route: 065
     Dates: start: 20191106
  19. DOXAZOSIN [Concomitant]
     Active Substance: DOXAZOSIN MESYLATE
     Indication: HYPERTENSION
  20. FURIX [Concomitant]
     Indication: HYPERTENSION
     Dosage: 80 MILLIGRAM, BID
     Route: 048
     Dates: start: 20210618, end: 20210624
  21. FURIX [Concomitant]
     Dosage: 80 MILLIGRAM, QD
     Route: 048
     Dates: start: 20201112, end: 20210614
  22. TEDUGLUTIDE [Suspect]
     Active Substance: TEDUGLUTIDE
     Dosage: 1.7 MILLIGRAM (0.02 MILLIGRAM/KILOGRAM DAILY DOSE, 7 DOSES PER WEEK)
     Route: 065
     Dates: start: 20191030, end: 20191030
  23. TEDUGLUTIDE [Suspect]
     Active Substance: TEDUGLUTIDE
     Dosage: 2 MILLIGRAM (0.03 MILLIGRAM/KILOGRAM DAILY DOSE, 7 DOSES PER WEEK)
     Route: 065
     Dates: start: 20191031, end: 20191031
  24. TEDUGLUTIDE [Suspect]
     Active Substance: TEDUGLUTIDE
     Dosage: 2 MILLIGRAM (0.03 MILLIGRAM/KILOGRAM DAILY DOSE, 7 DOSES PER WEEK)
     Route: 065
     Dates: start: 20191101, end: 20191101
  25. TEDUGLUTIDE [Suspect]
     Active Substance: TEDUGLUTIDE
     Dosage: 2.4 MILLIGRAM (0.04 MILLIGRAM/KILOGRAM DAILY DOSE, 7 DOSES PER WEEK)
     Route: 065
     Dates: start: 20191102, end: 20191102
  26. TEDUGLUTIDE [Suspect]
     Active Substance: TEDUGLUTIDE
     Dosage: 2.4 MILLIGRAM (0.04 MILLIGRAM/KILOGRAM DAILY DOSE, 7 DOSES PER WEEK)
     Route: 065
     Dates: start: 20191103, end: 20191103
  27. TEDUGLUTIDE [Suspect]
     Active Substance: TEDUGLUTIDE
     Dosage: 2.9 MILLIGRAM (0.04 MILLIGRAM/KILOGRAM DAILY DOSE, 7 DOSES PER WEEK)
     Route: 065
     Dates: start: 20191104, end: 20191104
  28. TEDUGLUTIDE [Suspect]
     Active Substance: TEDUGLUTIDE
     Dosage: 2.9 MILLIGRAM (0.04 MILLIGRAM/KILOGRAM DAILY DOSE, 7 DOSES PER WEEK)
     Route: 065
     Dates: start: 20191105, end: 20191105
  29. TEDUGLUTIDE [Suspect]
     Active Substance: TEDUGLUTIDE
     Dosage: 2.9 MILLIGRAM (0.04 MILLIGRAM/KILOGRAM DAILY DOSE, 7 DOSES PER WEEK)
     Route: 065
     Dates: start: 20191105, end: 20191105
  30. TEDUGLUTIDE [Suspect]
     Active Substance: TEDUGLUTIDE
     Dosage: 1.7 MILLIGRAM (0.02 MILLIGRAM/KILOGRAM DAILY DOSE, 7 DOSES PER WEEK)
     Route: 065
     Dates: start: 20191030, end: 20191030
  31. SELOKENZOC [Concomitant]
     Active Substance: METOPROLOL SUCCINATE
     Indication: HYPERTENSION
  32. TEDUGLUTIDE [Suspect]
     Active Substance: TEDUGLUTIDE
     Indication: SHORT-BOWEL SYNDROME
     Dosage: 1.7 MILLIGRAM (0.02 MILLIGRAM/KILOGRAM DAILY DOSE, 7 DOSES PER WEEK)
     Route: 065
     Dates: start: 20191029, end: 20191029
  33. TEDUGLUTIDE [Suspect]
     Active Substance: TEDUGLUTIDE
     Dosage: 2 MILLIGRAM (0.03 MILLIGRAM/KILOGRAM DAILY DOSE, 7 DOSES PER WEEK)
     Route: 065
     Dates: start: 20191031, end: 20191031
  34. TEDUGLUTIDE [Suspect]
     Active Substance: TEDUGLUTIDE
     Dosage: 2 MILLIGRAM (0.03 MILLIGRAM/KILOGRAM DAILY DOSE, 7 DOSES PER WEEK)
     Route: 065
     Dates: start: 20191101, end: 20191101
  35. TEDUGLUTIDE [Suspect]
     Active Substance: TEDUGLUTIDE
     Dosage: 2.4 MILLIGRAM (0.04 MILLIGRAM/KILOGRAM DAILY DOSE, 7 DOSES PER WEEK)
     Route: 065
     Dates: start: 20191102, end: 20191102
  36. TEDUGLUTIDE [Suspect]
     Active Substance: TEDUGLUTIDE
     Dosage: 3.4 MILLIGRAM (0.05 MILLIGRAM/KILOGRAM DAILY DOSE, 7 DOSES PER WEEK)
     Route: 065
     Dates: start: 20191106
  37. PRIMPERAN [Concomitant]
     Active Substance: METOCLOPRAMIDE HYDROCHLORIDE
     Indication: PROPHYLAXIS OF NAUSEA AND VOMITING
  38. D3?VICOTRAT [Concomitant]
     Indication: VITAMIN D DEFICIENCY
  39. TEDUGLUTIDE [Suspect]
     Active Substance: TEDUGLUTIDE
     Indication: SHORT-BOWEL SYNDROME
     Dosage: 1.7 MILLIGRAM (0.02 MILLIGRAM/KILOGRAM DAILY DOSE, 7 DOSES PER WEEK)
     Route: 065
     Dates: start: 20191029, end: 20191029
  40. TEDUGLUTIDE [Suspect]
     Active Substance: TEDUGLUTIDE
     Indication: SHORT-BOWEL SYNDROME
     Dosage: 1.7 MILLIGRAM (0.02 MILLIGRAM/KILOGRAM DAILY DOSE, 7 DOSES PER WEEK)
     Route: 065
     Dates: start: 20191029, end: 20191029
  41. TEDUGLUTIDE [Suspect]
     Active Substance: TEDUGLUTIDE
     Indication: SHORT-BOWEL SYNDROME
     Dosage: 1.7 MILLIGRAM (0.02 MILLIGRAM/KILOGRAM DAILY DOSE, 7 DOSES PER WEEK)
     Route: 065
     Dates: start: 20191029, end: 20191029
  42. TEDUGLUTIDE [Suspect]
     Active Substance: TEDUGLUTIDE
     Dosage: 1.7 MILLIGRAM (0.02 MILLIGRAM/KILOGRAM DAILY DOSE, 7 DOSES PER WEEK)
     Route: 065
     Dates: start: 20191030, end: 20191030
  43. TEDUGLUTIDE [Suspect]
     Active Substance: TEDUGLUTIDE
     Dosage: 2 MILLIGRAM (0.03 MILLIGRAM/KILOGRAM DAILY DOSE, 7 DOSES PER WEEK)
     Route: 065
     Dates: start: 20191101, end: 20191101
  44. TEDUGLUTIDE [Suspect]
     Active Substance: TEDUGLUTIDE
     Dosage: 2.9 MILLIGRAM (0.04 MILLIGRAM/KILOGRAM DAILY DOSE, 7 DOSES PER WEEK)
     Route: 065
     Dates: start: 20191104, end: 20191104
  45. TEDUGLUTIDE [Suspect]
     Active Substance: TEDUGLUTIDE
     Dosage: 2.9 MILLIGRAM (0.04 MILLIGRAM/KILOGRAM DAILY DOSE, 7 DOSES PER WEEK)
     Route: 065
     Dates: start: 20191105, end: 20191105
  46. COCILLANA?ETYFIN [ETHYLMORPHINE HYDROCHLORIDE;GUAREA GUIDONIA;POLYGALA [Concomitant]
     Active Substance: ETHYLMORPHINE HYDROCHLORIDE\HERBALS
     Indication: SUSPECTED COVID-19
  47. FLAGYL [Concomitant]
     Active Substance: METRONIDAZOLE\METRONIDAZOLE HYDROCHLORIDE
     Indication: OVERGROWTH BACTERIAL
     Dosage: 400 MILLIGRAM, BID
     Route: 048
     Dates: start: 20210729, end: 20210809
  48. TEDUGLUTIDE [Suspect]
     Active Substance: TEDUGLUTIDE
     Dosage: 1.7 MILLIGRAM (0.02 MILLIGRAM/KILOGRAM DAILY DOSE, 7 DOSES PER WEEK)
     Route: 065
     Dates: start: 20191030, end: 20191030
  49. TEDUGLUTIDE [Suspect]
     Active Substance: TEDUGLUTIDE
     Dosage: 2.4 MILLIGRAM (0.04 MILLIGRAM/KILOGRAM DAILY DOSE, 7 DOSES PER WEEK)
     Route: 065
     Dates: start: 20191102, end: 20191102
  50. ERYTHROCYTES [Concomitant]
     Active Substance: HUMAN RED BLOOD CELL
     Indication: ANAEMIA
  51. FURIX [Concomitant]
     Dosage: 10 MILLIGRAM PER MILLILITRE, PRN
     Route: 042
     Dates: start: 20210613, end: 20210622

REACTIONS (4)
  - Headache [Recovered/Resolved]
  - Nephrolithiasis [Not Recovered/Not Resolved]
  - COVID-19 [Recovered/Resolved]
  - Hypertension [Not Recovered/Not Resolved]

NARRATIVE: CASE EVENT DATE: 202003
